FAERS Safety Report 4823960-3 (Version None)
Quarter: 2005Q4

REPORT INFORMATION
  Report Type: 
  Country: None (occurrence: None)
  Receive Date: 20051109
  Receipt Date: 20051102
  Transmission Date: 20060501
  Serious: Yes (Other)
  Sender: FDA-Public Use
  Company Number: US-JNJFOC-20050806489

PATIENT
  Sex: Female
  Weight: 72.58 kg

DRUGS (5)
  1. RISPERDAL [Suspect]
     Indication: OBSESSIVE THOUGHTS
     Route: 048
  2. WELLBUTRIN [Concomitant]
     Route: 048
  3. NEURONTIN [Concomitant]
  4. XANAX XR [Concomitant]
  5. LUVOX [Concomitant]

REACTIONS (1)
  - TRISMUS [None]
